FAERS Safety Report 25929391 (Version 2)
Quarter: 2025Q4

REPORT INFORMATION
  Report Type: Spontaneous
  Country: JP (occurrence: JP)
  Receive Date: 20251016
  Receipt Date: 20251112
  Transmission Date: 20260118
  Serious: Yes (Other)
  Sender: CHEPLAPHARM
  Company Number: JP-CP_KK-2025JP004878

PATIENT
  Age: 93 Year
  Sex: Female

DRUGS (9)
  1. HYDROXYUREA [Suspect]
     Active Substance: HYDROXYUREA
     Indication: Essential thrombocythaemia
     Dosage: QD; FOUR TIMES A WEEK, THREE TIMES A WEEK; 11-JUL ADMINISTERED DAILY, FROM 18-JUL FOUR TIMES A WE...
     Route: 048
     Dates: start: 20250711, end: 20250717
  2. HYDROXYUREA [Suspect]
     Active Substance: HYDROXYUREA
     Indication: Essential thrombocythaemia
     Dosage: QD; FOUR TIMES A WEEK, THREE TIMES A WEEK; 11-JUL ADMINISTERED DAILY, FROM 18-JUL FOUR TIMES A WE...
     Route: 048
     Dates: start: 20250718, end: 20250803
  3. HYDROXYUREA [Suspect]
     Active Substance: HYDROXYUREA
     Indication: Essential thrombocythaemia
     Dosage: QD; FOUR TIMES A WEEK, THREE TIMES A WEEK; 11-JUL ADMINISTERED DAILY, FROM 18-JUL FOUR TIMES A WE...
     Route: 048
     Dates: start: 20250804, end: 20250821
  4. RABEPRAZOLE SODIUM [Concomitant]
     Active Substance: RABEPRAZOLE SODIUM
     Dosage: 2 TABLETS?DAILY DOSE: 2 DOSAGE FORM
     Dates: start: 201805
  5. METGLUCO [Concomitant]
     Active Substance: METFORMIN HYDROCHLORIDE
     Dosage: 250 MILLIGRAM, BID (MORNING AND EVENING); 2 TABLETS/DAY?DAILY DOSE: 500 MILLIGRAM
     Dates: start: 20231213
  6. EDOXABAN TOSYLATE [Concomitant]
     Active Substance: EDOXABAN TOSYLATE
     Dosage: ORALLY DISINTEGRATING; 1 TABLET/DAY?DAILY DOSE: 30 MILLIGRAM
     Route: 048
     Dates: start: 20250719
  7. Azilsartan od [Concomitant]
     Dosage: ORALLY DISINTEGRATING; 1 TABLET/DAY??DAILY DOSE: 20 MILLIGRAM
     Route: 048
     Dates: start: 20250719
  8. JANUVIA [Concomitant]
     Active Substance: SITAGLIPTIN PHOSPHATE
     Dosage: 50 MILLIGRAM, QD (AFTER BREAKFAST); 1 TABLET/DAY?DAILY DOSE: 50 MILLIGRAM
     Dates: start: 20120523
  9. PITAVASTATIN [Concomitant]
     Active Substance: PITAVASTATIN
     Dosage: 1 MILLIGRAM, QD (AFTER DINNER); 1 TABLET/DAY?DAILY DOSE: 1 MILLIGRAM
     Dates: start: 20140328

REACTIONS (1)
  - Erythromelalgia [Not Recovered/Not Resolved]
